FAERS Safety Report 4588976-3 (Version None)
Quarter: 2005Q1

REPORT INFORMATION
  Report Type: 
  Country: None (occurrence: None)
  Receive Date: 20050125
  Receipt Date: 20041025
  Transmission Date: 20050727
  Serious: No
  Sender: FDA-Public Use
  Company Number: USA030742610

PATIENT
  Age: 78 Year
  Sex: Female
  Weight: 72 kg

DRUGS (8)
  1. FORTEO [Suspect]
     Indication: OSTEOPOROSIS
     Dosage: 20 UG/1 DAY
     Dates: start: 20030617, end: 20040917
  2. FORTEO [Suspect]
     Indication: OSTEOPOROSIS
     Dosage: 20 UG/3 WEEK
  3. METAMYCIL (PSYLLIUM HYDROPHILIC MUCILLOID) [Concomitant]
  4. CALCIUM GLUCONATE [Concomitant]
  5. ASPIRIN [Concomitant]
  6. CENTRUM [Concomitant]
  7. ACTONEL [Concomitant]
  8. FOSAMAX [Concomitant]

REACTIONS (15)
  - CARDIOVASCULAR DISORDER [None]
  - CONSTIPATION [None]
  - CONTUSION [None]
  - DIZZINESS [None]
  - DYSPHAGIA [None]
  - FEELING ABNORMAL [None]
  - HEART RATE INCREASED [None]
  - INJECTION SITE HAEMORRHAGE [None]
  - MUSCLE SPASMS [None]
  - MUSCLE TIGHTNESS [None]
  - PAIN IN EXTREMITY [None]
  - PALPITATIONS [None]
  - STOMATITIS [None]
  - THROAT TIGHTNESS [None]
  - VERTIGO [None]
